FAERS Safety Report 3867550 (Version 1)
Quarter: 2020Q3

REPORT INFORMATION
  Report Type: Spontaneous
  Country: US (occurrence: None)
  Receive Date: 20021119
  Receipt Date: 20021119
  Transmission Date: 20201105
  Serious: Yes (Other)
  Sender: FDA-Public Use
  Company Number: None

PATIENT
  Age: 29 Year
  Sex: Female
  Weight: 54.48 kg

DRUGS (2)
  1. PHENAZOPYRIDINE. [Suspect]
     Active Substance: PHENAZOPYRIDINE
     Indication: URINARY TRACT INFECTION
     Dosage: 95MG 2 TAB STAT ORAL
     Route: 048
     Dates: start: 20020923, end: 20020923
  2. SULFAMETHOXAZOLE + TRIMETHOPRIM [Suspect]
     Active Substance: SULFAMETHOXAZOLE\TRIMETHOPRIM
     Indication: URINARY TRACT INFECTION
     Dosage: 800/160MG 1 BID ORAL
     Route: 048
     Dates: start: 20020923, end: 20020923

REACTIONS (12)
  - Lip blister [None]
  - Blister [None]
  - Dysuria [None]
  - Rash pruritic [None]
  - Medication error [None]
  - Mouth ulceration [None]
  - Oedema [None]
  - Rash erythematous [None]
  - Labia enlarged [None]
  - Face oedema [None]
  - Skin lesion [None]
  - Genital ulceration [None]

NARRATIVE: CASE EVENT DATE: 20020923
